FAERS Safety Report 9831619 (Version 1)
Quarter: 2014Q1

REPORT INFORMATION
  Report Type: Spontaneous
  Country: US (occurrence: US)
  Receive Date: 20140121
  Receipt Date: 20140121
  Transmission Date: 20141002
  Serious: No
  Sender: FDA-Public Use
  Company Number: US-PFIZER INC-2014016728

PATIENT
  Age: 54 Year
  Sex: Female

DRUGS (11)
  1. PRISTIQ [Suspect]
     Indication: DEPRESSION
     Dosage: 50 MG, UNK
     Dates: end: 20131115
  2. ALEVE [Concomitant]
     Dosage: 250 MG, UNK
  3. ALPRAZOLAM [Concomitant]
     Dosage: 0.5 MG, UNK
  4. AMBIEN [Concomitant]
     Dosage: 10 MG, UNK
  5. FLECAINIDE ACETATE [Concomitant]
     Dosage: 50 MG, UNK
  6. FLUOCINONIDE [Concomitant]
     Dosage: UNK
  7. FLONASE [Concomitant]
     Dosage: 50 UG, UNK
  8. PAMINE [Concomitant]
     Dosage: 2.5 MG, UNK
  9. PROPRANOLOL [Concomitant]
     Dosage: 10 MG, UNK
  10. VALACYCLOVIR [Concomitant]
     Dosage: 1 G, UNK
  11. ZOLPIDEM TARTRATE [Concomitant]
     Dosage: 10 MG, UNK

REACTIONS (1)
  - Blood pressure abnormal [Unknown]
